FAERS Safety Report 6276509-5 (Version None)
Quarter: 2009Q3

REPORT INFORMATION
  Report Type: 
  Country: None (occurrence: None)
  Receive Date: 20090720
  Receipt Date: 20090109
  Transmission Date: 20100115
  Serious: Yes (Other)
  Sender: FDA-Public Use
  Company Number: USA-2009-0036497

PATIENT
  Sex: Female

DRUGS (2)
  1. MORPHINE SULFATE [Suspect]
     Indication: DRUG ABUSE
  2. LORTAB [Suspect]
     Indication: DRUG ABUSE

REACTIONS (1)
  - DRUG ABUSE [None]
